FAERS Safety Report 7080985-8 (Version None)
Quarter: 2010Q4

REPORT INFORMATION
  Report Type: 
  Country: None (occurrence: None)
  Receive Date: 20101102
  Receipt Date: 20101102
  Transmission Date: 20110411
  Serious: No
  Sender: FDA-Public Use
  Company Number: None

PATIENT
  Sex: Male
  Weight: 45.3597 kg

DRUGS (1)
  1. SUMATRIPTAN 25MG GENERIC [Suspect]
     Indication: HEADACHE
     Dosage: 25MG AS NEEDED PO
     Route: 048
     Dates: start: 20101025, end: 20101025

REACTIONS (2)
  - DRUG INEFFECTIVE [None]
  - PRODUCT SUBSTITUTION ISSUE [None]
